FAERS Safety Report 14066913 (Version 1)
Quarter: 2017Q4

REPORT INFORMATION
  Report Type: Spontaneous
  Country: US (occurrence: None)
  Receive Date: 20171009
  Receipt Date: 20171009
  Transmission Date: 20180321
  Serious: Yes (Other)
  Sender: FDA-Public Use
  Company Number: None

PATIENT
  Age: 1 Year
  Sex: Female
  Weight: 7 kg

DRUGS (2)
  1. CURLIN [Suspect]
     Active Substance: DEVICE
  2. LIPID 20% [Suspect]
     Active Substance: EGG PHOSPHOLIPIDS\GLYCERIN\SOYBEAN OIL

REACTIONS (2)
  - Incorrect dose administered by device [None]
  - Device malfunction [None]

NARRATIVE: CASE EVENT DATE: 20170914
